FAERS Safety Report 8273639-3 (Version None)
Quarter: 2012Q2

REPORT INFORMATION
  Report Type: 
  Country: None (occurrence: None)
  Receive Date: 20120411
  Receipt Date: 20120330
  Transmission Date: 20120825
  Serious: Yes (Hospitalization)
  Sender: FDA-Public Use
  Company Number: FR-BRISTOL-MYERS SQUIBB COMPANY-16494528

PATIENT
  Age: 54 Year
  Sex: Female

DRUGS (8)
  1. FORADIL [Concomitant]
     Dosage: 1DF= 3 DOSAGE FORMS
  2. KEPPRA [Concomitant]
  3. ALDACTONE [Concomitant]
  4. FLUTICASONE PROPIONATE [Concomitant]
  5. BRICANYL [Concomitant]
     Dosage: AEROSOLS OF BRICANYL
  6. COUMADIN [Suspect]
     Dosage: 1 DF = 3.5 MG AND 4 MG INTERMITTENTLY STOPPED ON 20-NOV-2011 `
     Route: 048
  7. ATROVENT [Concomitant]
  8. LASIX [Concomitant]

REACTIONS (3)
  - PERITONEAL HAEMORRHAGE [None]
  - DUODENITIS [None]
  - BARRETT'S OESOPHAGUS [None]
